FAERS Safety Report 24943909 (Version 1)
Quarter: 2025Q1

REPORT INFORMATION
  Report Type: Spontaneous
  Country: US (occurrence: US)
  Receive Date: 20250207
  Receipt Date: 20250207
  Transmission Date: 20250409
  Serious: No
  Sender: PFIZER
  Company Number: US-PFIZER INC-202500028062

PATIENT
  Age: 42 Year
  Sex: Female

DRUGS (7)
  1. PAXLOVID [Suspect]
     Active Substance: NIRMATRELVIR\RITONAVIR
     Indication: COVID-19 treatment
     Dosage: NIRMATRELVIR 300 MG / RITONAVIR 100 MG, 2X/DAY
     Dates: start: 20250204
  2. ANTI DIARRHEA [Concomitant]
     Dates: start: 20250131, end: 20250131
  3. MOTRIN DUAL ACTION [Concomitant]
     Indication: Pyrexia
     Dates: start: 20250130, end: 20250205
  4. MOTRIN DUAL ACTION [Concomitant]
     Indication: Headache
  5. ZITHROMAX [Concomitant]
     Active Substance: AZITHROMYCIN DIHYDRATE
     Dates: start: 20250202, end: 20250206
  6. PROMETHAZINE DM [Concomitant]
     Active Substance: DEXTROMETHORPHAN HYDROBROMIDE\PROMETHAZINE HYDROCHLORIDE
     Dates: start: 20250203, end: 20250203
  7. MEDROL [Concomitant]
     Active Substance: METHYLPREDNISOLONE
     Dates: start: 20250204

REACTIONS (1)
  - Dysgeusia [Not Recovered/Not Resolved]

NARRATIVE: CASE EVENT DATE: 20250204
